FAERS Safety Report 5212064-6 (Version None)
Quarter: 2007Q1

REPORT INFORMATION
  Report Type: 
  Country: None (occurrence: None)
  Receive Date: 20070118
  Receipt Date: 20070109
  Transmission Date: 20070707
  Serious: Yes (Disabling, Other)
  Sender: FDA-Public Use
  Company Number: PHFR2006GB03552

PATIENT
  Age: 39 Year
  Sex: Male
  Weight: 114 kg

DRUGS (1)
  1. NEORAL [Suspect]
     Indication: PSORIASIS
     Dosage: 300MG/DAY
     Route: 048

REACTIONS (2)
  - NEPHROLITHIASIS [None]
  - RENAL COLIC [None]
